FAERS Safety Report 17880058 (Version 1)
Quarter: 2020Q2

REPORT INFORMATION
  Report Type: Spontaneous
  Country: US (occurrence: US)
  Receive Date: 20200609
  Receipt Date: 20200609
  Transmission Date: 20200714
  Serious: Yes (Death)
  Sender: FDA-Public Use
  Company Number: None

PATIENT
  Sex: Male

DRUGS (5)
  1. MEGESTROL [Concomitant]
     Active Substance: MEGESTROL
  2. HYDROCODONE [Concomitant]
     Active Substance: HYDROCODONE
  3. KEYTRUDA [Concomitant]
     Active Substance: PEMBROLIZUMAB
  4. LEVOXYL [Concomitant]
     Active Substance: LEVOTHYROXINE SODIUM
  5. XGEVA [Suspect]
     Active Substance: DENOSUMAB
     Indication: MALIGNANT MELANOMA
     Dosage: ?          OTHER DOSE:1 VIAL; OTHER FREQUENCY: Q4WK
     Route: 058
     Dates: start: 20190827

REACTIONS (1)
  - Death [None]
